FAERS Safety Report 26161394 (Version 1)
Quarter: 2025Q4

REPORT INFORMATION
  Report Type: Spontaneous
  Country: US (occurrence: None)
  Receive Date: 20251216
  Receipt Date: 20251216
  Transmission Date: 20260118
  Serious: No
  Sender: UCB
  Company Number: US-UCBSA-2025064825

PATIENT
  Weight: 88.45 kg

DRUGS (11)
  1. BIMZELX [Suspect]
     Active Substance: BIMEKIZUMAB-BKZX
     Indication: Psoriatic arthropathy
     Dosage: 160 MILLIGRAM, EV 4 WEEKS
  2. BIMZELX [Suspect]
     Active Substance: BIMEKIZUMAB-BKZX
     Indication: Psoriasis
  3. BIMZELX [Suspect]
     Active Substance: BIMEKIZUMAB-BKZX
     Indication: Blood test abnormal
  4. BIMZELX [Suspect]
     Active Substance: BIMEKIZUMAB-BKZX
     Indication: Lumbar spinal stenosis
  5. BIMZELX [Suspect]
     Active Substance: BIMEKIZUMAB-BKZX
     Indication: Pain
  6. BIMZELX [Suspect]
     Active Substance: BIMEKIZUMAB-BKZX
     Indication: Body mass index increased
  7. BIMZELX [Suspect]
     Active Substance: BIMEKIZUMAB-BKZX
     Indication: Bone disorder
  8. BIMZELX [Suspect]
     Active Substance: BIMEKIZUMAB-BKZX
     Indication: Obesity
  9. BIMZELX [Suspect]
     Active Substance: BIMEKIZUMAB-BKZX
     Indication: Polyneuropathy
  10. BIMZELX [Suspect]
     Active Substance: BIMEKIZUMAB-BKZX
     Indication: Cyst
  11. BIMZELX [Suspect]
     Active Substance: BIMEKIZUMAB-BKZX
     Indication: Off label use

REACTIONS (2)
  - Oral herpes [Not Recovered/Not Resolved]
  - Off label use [Unknown]
